FAERS Safety Report 8807814 (Version 1)
Quarter: 2012Q4

REPORT INFORMATION
  Report Type: 
  Country: US (occurrence: US)
  Receive Date: 20120925
  Receipt Date: 20120925
  Transmission Date: 20130627
  Serious: Yes (Death, Hospitalization)
  Sender: FDA-Public Use
  Company Number: US-ROCHE-1108998

PATIENT
  Sex: Female

DRUGS (8)
  1. TARCEVA [Suspect]
     Indication: MALIGNANT RESPIRATORY TRACT NEOPLASM
     Dosage: 1 pill daily
     Route: 048
     Dates: start: 20071121, end: 20071217
  2. AVASTIN [Suspect]
     Indication: METASTASES TO LUNG
     Route: 042
     Dates: start: 20071121, end: 20071121
  3. ATIVAN [Concomitant]
  4. BENADRYL [Concomitant]
  5. HALDOL [Concomitant]
  6. REGLAN [Concomitant]
  7. COMPAZINE [Concomitant]
  8. MORPHINE [Concomitant]

REACTIONS (2)
  - Non-small cell lung cancer [Fatal]
  - Breast cellulitis [Unknown]
